FAERS Safety Report 12947254 (Version 1)
Quarter: 2016Q4

REPORT INFORMATION
  Report Type: Report from Study
  Country: US (occurrence: US)
  Receive Date: 20161116
  Receipt Date: 20161116
  Transmission Date: 20170207
  Serious: Yes (Hospitalization)
  Sender: FDA-Public Use
  Company Number: US-SA-2016SA206164

PATIENT
  Age: 10 Year

DRUGS (1)
  1. LUMIZYME [Suspect]
     Active Substance: ALGLUCOSIDASE ALFA
     Indication: GLYCOGEN STORAGE DISEASE TYPE II
     Dosage: DOSE: 40 UNITS NOT PROVIDED?FREQUENCY : Q1
     Route: 041
     Dates: start: 20060907

REACTIONS (1)
  - Malaise [Recovering/Resolving]
